FAERS Safety Report 25932175 (Version 1)
Quarter: 2025Q4

REPORT INFORMATION
  Report Type: Spontaneous
  Country: US (occurrence: US)
  Receive Date: 20251016
  Receipt Date: 20251016
  Transmission Date: 20260118
  Serious: No
  Sender: ABBVIE
  Company Number: US-ABBVIE-6493523

PATIENT
  Sex: Female

DRUGS (3)
  1. LINZESS [Suspect]
     Active Substance: LINACLOTIDE
     Indication: Faecaloma
     Route: 048
     Dates: start: 202510
  2. MOTEGRITY [Suspect]
     Active Substance: PRUCALOPRIDE SUCCINATE
     Indication: Product used for unknown indication
     Route: 065
  3. TRULANCE [Suspect]
     Active Substance: PLECANATIDE
     Indication: Product used for unknown indication
     Route: 065

REACTIONS (9)
  - Inappropriate schedule of product administration [Unknown]
  - Off label use [Unknown]
  - Drug ineffective [Unknown]
  - Product physical issue [Unknown]
  - Drug ineffective [Unknown]
  - Product solubility abnormal [Unknown]
  - Inappropriate schedule of product administration [Unknown]
  - Wrong technique in product usage process [Unknown]
  - Product preparation error [Unknown]

NARRATIVE: CASE EVENT DATE: 20250101
